FAERS Safety Report 8286041-5 (Version None)
Quarter: 2012Q2

REPORT INFORMATION
  Report Type: 
  Country: None (occurrence: None)
  Receive Date: 20120416
  Receipt Date: 20120406
  Transmission Date: 20120825
  Serious: Yes (Hospitalization)
  Sender: FDA-Public Use
  Company Number: US-BIOGENIDEC-2012BI012025

PATIENT
  Sex: Female

DRUGS (3)
  1. AVONEX [Suspect]
     Indication: MULTIPLE SCLEROSIS
     Route: 030
     Dates: start: 20030303, end: 20041004
  2. AVONEX [Suspect]
     Route: 030
     Dates: start: 20081119, end: 20090801
  3. PENICILLIN [Concomitant]

REACTIONS (11)
  - SMALL INTESTINAL OBSTRUCTION [None]
  - BALANCE DISORDER [None]
  - LATEX ALLERGY [None]
  - ASTHENIA [None]
  - MIGRAINE [None]
  - FOOD ALLERGY [None]
  - HOUSE DUST ALLERGY [None]
  - SEASONAL ALLERGY [None]
  - DRUG HYPERSENSITIVITY [None]
  - MYCOTIC ALLERGY [None]
  - ALLERGY TO ANIMAL [None]
